FAERS Safety Report 21734820 (Version 1)
Quarter: 2022Q4

REPORT INFORMATION
  Report Type: Spontaneous
  Country: US (occurrence: US)
  Receive Date: 20221215
  Receipt Date: 20221215
  Transmission Date: 20230113
  Serious: Yes (Other)
  Sender: FDA-Public Use
  Company Number: US-PFIZER INC-202201369042

PATIENT
  Age: 48 Year
  Sex: Female

DRUGS (3)
  1. OXALIPLATIN [Suspect]
     Active Substance: OXALIPLATIN
     Dosage: UNK
  2. FLUOROURACIL [Suspect]
     Active Substance: FLUOROURACIL
     Dosage: UNK
  3. LEUCOVORIN [Suspect]
     Active Substance: LEUCOVORIN
     Dosage: UNK

REACTIONS (1)
  - Neuropathy peripheral [Not Recovered/Not Resolved]

NARRATIVE: CASE EVENT DATE: 20221129
